FAERS Safety Report 4429210-4 (Version None)
Quarter: 2004Q3

REPORT INFORMATION
  Report Type: 
  Country: None (occurrence: None)
  Receive Date: 20040819
  Receipt Date: 20040809
  Transmission Date: 20050211
  Serious: Yes (Other)
  Sender: FDA-Public Use
  Company Number: FR-JNJFOC-20040702389

PATIENT
  Age: 59 Year
  Sex: Female
  Weight: 153 kg

DRUGS (31)
  1. REMICADE [Suspect]
     Route: 042
  2. REMICADE [Suspect]
     Route: 042
  3. REMICADE [Suspect]
     Route: 042
  4. REMICADE [Suspect]
     Route: 042
  5. REMICADE [Suspect]
     Route: 042
  6. REMICADE [Suspect]
     Route: 042
  7. REMICADE [Suspect]
     Route: 042
  8. REMICADE [Suspect]
     Route: 042
  9. REMICADE [Suspect]
     Route: 042
  10. REMICADE [Suspect]
     Route: 042
  11. REMICADE [Suspect]
     Route: 042
  12. REMICADE [Suspect]
     Route: 042
  13. REMICADE [Suspect]
     Route: 042
  14. REMICADE [Suspect]
     Route: 042
  15. REMICADE [Suspect]
     Route: 042
  16. REMICADE [Suspect]
     Route: 042
  17. REMICADE [Suspect]
     Route: 042
  18. REMICADE [Suspect]
     Route: 042
  19. REMICADE [Suspect]
     Route: 042
  20. REMICADE [Suspect]
     Route: 042
  21. REMICADE [Suspect]
     Route: 042
  22. REMICADE [Suspect]
     Route: 042
  23. REMICADE [Suspect]
     Route: 042
  24. METHOTREXATE [Concomitant]
     Route: 049
  25. DOLIPRANE [Concomitant]
     Route: 049
  26. VIOXX [Concomitant]
     Route: 049
  27. FOLIC ACID [Concomitant]
     Route: 049
  28. APROVEL [Concomitant]
     Route: 049
  29. ALDALIX [Concomitant]
     Route: 049
  30. ALDALIX [Concomitant]
     Route: 049
  31. EVISTA [Concomitant]
     Indication: MENOPAUSE

REACTIONS (1)
  - SYSTEMIC LUPUS ERYTHEMATOSUS [None]
